FAERS Safety Report 23068098 (Version 1)
Quarter: 2023Q4

REPORT INFORMATION
  Report Type: Spontaneous
  Country: JP (occurrence: JP)
  Receive Date: 20231016
  Receipt Date: 20231016
  Transmission Date: 20240110
  Serious: Yes (Other)
  Sender: FDA-Public Use
  Company Number: JP-002147023-NVSJ2023JP011773

PATIENT

DRUGS (1)
  1. AFINITOR [Suspect]
     Active Substance: EVEROLIMUS
     Indication: Neuroendocrine tumour
     Dosage: UNK
     Route: 048

REACTIONS (4)
  - Pancreatic duct obstruction [Unknown]
  - Diarrhoea [Recovering/Resolving]
  - Hyperglycaemia [Unknown]
  - Stomatitis [Recovered/Resolved]
